FAERS Safety Report 20965836 (Version 2)
Quarter: 2022Q2

REPORT INFORMATION
  Report Type: Spontaneous
  Country: US (occurrence: US)
  Receive Date: 20220616
  Receipt Date: 20220622
  Transmission Date: 20220720
  Serious: Yes (Hospitalization)
  Sender: FDA-Public Use
  Company Number: US-AUROBINDO-AUR-APL-2022-021349

PATIENT
  Age: 20 Year
  Sex: Male

DRUGS (9)
  1. CLONAZEPAM [Suspect]
     Active Substance: CLONAZEPAM
     Indication: Product used for unknown indication
     Dosage: 1 MILLIGRAM, ONCE A DAY
     Route: 065
  2. LAMOTRIGINE [Suspect]
     Active Substance: LAMOTRIGINE
     Indication: Product used for unknown indication
     Dosage: 100 MILLIGRAM, TWO TIMES A DAY
     Route: 065
  3. ROPINIROLE [Suspect]
     Active Substance: ROPINIROLE
     Indication: Hallucination, visual
     Dosage: 0.25 MILLIGRAM, 3 TIMES A DAY
     Route: 065
  4. ROPINIROLE [Suspect]
     Active Substance: ROPINIROLE
     Indication: Parkinson^s disease
  5. ROPINIROLE [Suspect]
     Active Substance: ROPINIROLE
     Indication: Restless legs syndrome
  6. ROPINIROLE [Suspect]
     Active Substance: ROPINIROLE
     Indication: Extrapyramidal disorder
  7. DELSYM [Concomitant]
     Active Substance: DEXTROMETHORPHAN
     Indication: Product used for unknown indication
     Dosage: 300 MILLIGRAM (EVERY 2 TO 4 WEEKS)
     Route: 065
     Dates: start: 201506
  8. DELSYM [Concomitant]
     Active Substance: DEXTROMETHORPHAN
     Dosage: 400 MILLIGRAM (PER OCCASION)
     Route: 065
  9. ROBITUSSIN (GUAIFENESIN) [Concomitant]
     Active Substance: GUAIFENESIN
     Indication: Product used for unknown indication
     Dosage: 300 MILLIGRAM (ON ONE OCCASION)
     Route: 065

REACTIONS (2)
  - Abnormal behaviour [Unknown]
  - Mania [Unknown]
